FAERS Safety Report 6413253-5 (Version None)
Quarter: 2009Q4

REPORT INFORMATION
  Report Type: 
  Country: None (occurrence: None)
  Receive Date: 20091026
  Receipt Date: 20091020
  Transmission Date: 20100525
  Serious: Yes (Death, Hospitalization)
  Sender: FDA-Public Use
  Company Number: FR-JNJFOC-20090805678

PATIENT
  Sex: Female
  Weight: 75 kg

DRUGS (5)
  1. DURAGESIC-100 [Suspect]
     Indication: ARTHRALGIA
     Dosage: SINCE 2 YEARS
     Route: 062
     Dates: start: 20060101, end: 20090101
  2. EFFEXOR [Concomitant]
     Indication: DEPRESSION
     Dosage: 3-0-2
     Route: 048
  3. EQUANIL [Concomitant]
     Indication: ANXIETY
     Route: 048
  4. FORLAX [Concomitant]
     Indication: CONSTIPATION
     Route: 048
  5. COVERSYL [Concomitant]
     Indication: HYPERTENSION
     Route: 048

REACTIONS (2)
  - CONSTIPATION [None]
  - INTESTINAL OBSTRUCTION [None]
